FAERS Safety Report 4991962-2 (Version None)
Quarter: 2006Q2

REPORT INFORMATION
  Report Type: 
  Country: None (occurrence: None)
  Receive Date: 20060504
  Receipt Date: 20060426
  Transmission Date: 20061013
  Serious: Yes (Hospitalization)
  Sender: FDA-Public Use
  Company Number: US-MERCK-0604USA04042

PATIENT
  Age: 64 Year
  Sex: Female
  Weight: 75 kg

DRUGS (9)
  1. VIOXX [Suspect]
     Indication: OSTEOARTHRITIS
     Route: 048
     Dates: start: 19990101, end: 20040901
  2. PROPOXYPHENE HYDROCHLORIDE [Concomitant]
     Route: 065
  3. PRILOSEC [Concomitant]
     Route: 065
  4. LORAZEPAM [Concomitant]
     Route: 065
  5. GLUCOTROL XL [Concomitant]
     Route: 065
  6. TIAZAC [Concomitant]
     Route: 065
  7. DEMADEX [Concomitant]
     Route: 065
  8. ZOCOR [Concomitant]
     Route: 065
  9. LIPITOR [Concomitant]
     Route: 065

REACTIONS (1)
  - CEREBROVASCULAR ACCIDENT [None]
